FAERS Safety Report 14607683 (Version 1)
Quarter: 2018Q1

REPORT INFORMATION
  Report Type: Spontaneous
  Country: JP (occurrence: JP)
  Receive Date: 20180307
  Receipt Date: 20180307
  Transmission Date: 20180509
  Serious: Yes (Hospitalization, Other)
  Sender: FDA-Public Use
  Company Number: JP-GLAXOSMITHKLINE-JP2017JPN186004

PATIENT
  Age: 56 Year
  Sex: Male
  Weight: 82 kg

DRUGS (2)
  1. VALTREX [Suspect]
     Active Substance: VALACYCLOVIR HYDROCHLORIDE
     Indication: OPHTHALMIC HERPES SIMPLEX
     Dosage: 500 MG, TID
     Route: 048
     Dates: start: 20171130, end: 20171203
  2. PREDONINE [Concomitant]
     Active Substance: PREDNISOLONE
     Indication: OPHTHALMIC HERPES SIMPLEX
     Dosage: 40 MG, 1D
     Dates: start: 20171130, end: 20171203

REACTIONS (5)
  - Hallucination [Recovered/Resolved]
  - Toxic encephalopathy [Recovered/Resolved]
  - Cerebellar ataxia [Recovered/Resolved]
  - Mental impairment [Recovered/Resolved]
  - Prescribed overdose [Unknown]

NARRATIVE: CASE EVENT DATE: 20171130
